FAERS Safety Report 17864050 (Version 3)
Quarter: 2020Q2

REPORT INFORMATION
  Report Type: Report from Study
  Country: US (occurrence: US)
  Receive Date: 20200605
  Receipt Date: 20200626
  Transmission Date: 20200714
  Serious: Yes (Life-Threatening)
  Sender: FDA-Public Use
  Company Number: NVSC2020US157113

PATIENT
  Age: 63 Year
  Sex: Female

DRUGS (1)
  1. ENTRESTO [Suspect]
     Active Substance: SACUBITRIL\VALSARTAN
     Indication: CARDIAC FAILURE
     Dosage: 50 MG, BID (24/26MG)
     Route: 048

REACTIONS (11)
  - Suicidal ideation [Unknown]
  - Crying [Unknown]
  - Stress [Unknown]
  - Memory impairment [Unknown]
  - Pollakiuria [Unknown]
  - Mood altered [Unknown]
  - Attention deficit hyperactivity disorder [Unknown]
  - Weight abnormal [Unknown]
  - Fluid retention [Unknown]
  - Cough [Unknown]
  - Mental disorder [Not Recovered/Not Resolved]

NARRATIVE: CASE EVENT DATE: 20200602
